FAERS Safety Report 4978430-9 (Version None)
Quarter: 2006Q1

REPORT INFORMATION
  Report Type: 
  Country: None (occurrence: None)
  Receive Date: 20060228
  Receipt Date: 20050902
  Transmission Date: 20060701
  Serious: Yes (Life-Threatening, Hospitalization)
  Sender: FDA-Public Use
  Company Number: 05P-163-0301603-00

PATIENT
  Age: 48 Year
  Sex: Female
  Weight: 70.3075 kg

DRUGS (9)
  1. DILAUDID [Suspect]
     Dosage: 900 MG, 1  IN 1 D, ORAL
     Route: 048
     Dates: start: 20050127, end: 20050127
  2. QUETIAPINE FUMARATE [Suspect]
     Indication: DEPRESSION
     Dosage: 900 MG, 1 IN 1 D, ORAL
     Route: 048
     Dates: start: 19990101, end: 20050101
  3. VENLAFAXINE HCL [Concomitant]
  4. TRAZODONE HCL [Concomitant]
  5. ANALGESICS [Concomitant]
  6. PEGINTERFERON ALFA-2B [Suspect]
     Indication: HEPATITIS C
     Dosage: 120 MCG, SUBCUTANEOUS
     Route: 058
     Dates: start: 20041230
  7. RIBAVIRIN [Suspect]
     Indication: HEPATITIS C
     Dosage: 800 MG, 1 IN 1 D, ORAL
     Route: 048
     Dates: start: 20041230
  8. TOPIRAMATE [Concomitant]
  9. LANSOPRAZOLE [Concomitant]

REACTIONS (6)
  - ACCIDENTAL OVERDOSE [None]
  - DEHYDRATION [None]
  - DEPENDENCE [None]
  - INTENTIONAL DRUG MISUSE [None]
  - LOSS OF CONSCIOUSNESS [None]
  - MALAISE [None]
